FAERS Safety Report 17002670 (Version 2)
Quarter: 2019Q4

REPORT INFORMATION
  Report Type: Spontaneous
  Country: US (occurrence: US)
  Receive Date: 20191107
  Receipt Date: 20191108
  Transmission Date: 20200122
  Serious: Yes (Other)
  Sender: FDA-Public Use
  Company Number: US-ROCHE-2454033

PATIENT
  Age: 71 Year
  Sex: Female
  Weight: 81.72 kg

DRUGS (3)
  1. ACTEMRA [Suspect]
     Active Substance: TOCILIZUMAB
     Indication: TEMPORAL ARTERITIS
     Dosage: ONGOING: NO
     Route: 058
     Dates: start: 20190514, end: 201907
  2. MEDROL [Concomitant]
     Active Substance: METHYLPREDNISOLONE
     Indication: TEMPORAL ARTERITIS
     Dosage: YES
     Route: 065
  3. ACTEMRA [Suspect]
     Active Substance: TOCILIZUMAB
     Dosage: NO
     Route: 058
     Dates: start: 201907, end: 20190910

REACTIONS (16)
  - Abscess [Unknown]
  - Swelling [Not Recovered/Not Resolved]
  - Swelling of eyelid [Recovering/Resolving]
  - Erythema of eyelid [Recovering/Resolving]
  - Eyelid pain [Recovering/Resolving]
  - Peripheral swelling [Unknown]
  - Pain [Not Recovered/Not Resolved]
  - C-reactive protein abnormal [Unknown]
  - Neurological symptom [Unknown]
  - Musculoskeletal stiffness [Not Recovered/Not Resolved]
  - Blood glucose decreased [Unknown]
  - Injection related reaction [Unknown]
  - Immunosuppression [Unknown]
  - Red blood cell sedimentation rate abnormal [Unknown]
  - Urticaria [Recovered/Resolved]
  - Ingrowing nail [Unknown]

NARRATIVE: CASE EVENT DATE: 201907
